FAERS Safety Report 11065933 (Version 1)
Quarter: 2015Q2

REPORT INFORMATION
  Report Type: Spontaneous
  Country: US (occurrence: None)
  Receive Date: 20150423
  Receipt Date: 20150423
  Transmission Date: 20150821
  Serious: Yes (Hospitalization, Other)
  Sender: FDA-Public Use
  Company Number: 2015RIS00053

PATIENT
  Age: 41 Year
  Sex: Female

DRUGS (3)
  1. CIPROFLOXACIN (CIPROFLOXACIN) [Suspect]
     Active Substance: CIPROFLOXACIN
     Indication: GASTROENTERITIS
  2. CIPROFLOXACIN (CIPROFLOXACIN) [Suspect]
     Active Substance: CIPROFLOXACIN
     Indication: PYELONEPHRITIS
  3. METRONIDAZOLE (METRONIDAZOLE) UNKNOWN [Suspect]
     Active Substance: METRONIDAZOLE
     Indication: GASTROENTERITIS

REACTIONS (2)
  - Clostridium difficile infection [None]
  - Crohn^s disease [None]
